FAERS Safety Report 8950796 (Version 1)
Quarter: 2012Q4

REPORT INFORMATION
  Report Type: Spontaneous
  Country: US (occurrence: None)
  Receive Date: 20121128
  Receipt Date: 20121128
  Transmission Date: 20130627
  Serious: Yes (Other)
  Sender: FDA-Public Use
  Company Number: FK201203423

PATIENT
  Age: 70 Year

DRUGS (3)
  1. DEXAMETHASONE [Suspect]
     Indication: PRODUCT USED FOR UNKNOWN INDICATION
  2. RITUXAN [Suspect]
  3. TREANDA [Suspect]

REACTIONS (2)
  - Pneumonitis [None]
  - Pneumonia [None]
